FAERS Safety Report 7116243-2 (Version None)
Quarter: 2010Q4

REPORT INFORMATION
  Report Type: 
  Country: None (occurrence: None)
  Receive Date: 20101115
  Receipt Date: 20101105
  Transmission Date: 20110411
  Serious: Yes (Hospitalization)
  Sender: FDA-Public Use
  Company Number: JPI-P-012946

PATIENT
  Age: 94 Year
  Sex: Female

DRUGS (3)
  1. XYREM [Suspect]
     Indication: PRODUCT USED FOR UNKNOWN INDICATION
     Dosage: 3 GM (1.5 GM, 2 IN 1 D), ORAL; (2 IN 1 D, ORAL); 6.5 GM (3.25 GM, 2 IN 1 D), ORAL
     Route: 048
     Dates: end: 20100713
  2. XYREM [Suspect]
     Indication: PRODUCT USED FOR UNKNOWN INDICATION
     Dosage: 3 GM (1.5 GM, 2 IN 1 D), ORAL; (2 IN 1 D, ORAL); 6.5 GM (3.25 GM, 2 IN 1 D), ORAL
     Route: 048
     Dates: start: 20050104
  3. XYREM [Suspect]
     Indication: PRODUCT USED FOR UNKNOWN INDICATION
     Dosage: 3 GM (1.5 GM, 2 IN 1 D), ORAL; (2 IN 1 D, ORAL); 6.5 GM (3.25 GM, 2 IN 1 D), ORAL
     Route: 048
     Dates: start: 20100714

REACTIONS (2)
  - FALL [None]
  - LOWER LIMB FRACTURE [None]
